FAERS Safety Report 13617217 (Version 2)
Quarter: 2018Q2

REPORT INFORMATION
  Report Type: Spontaneous
  Country: US (occurrence: US)
  Receive Date: 20170606
  Receipt Date: 20180517
  Transmission Date: 20180711
  Serious: No
  Sender: FDA-Public Use
  Company Number: US-SA-2017SA067833

PATIENT
  Age: 78 Year
  Sex: Female
  Weight: 83.91 kg

DRUGS (6)
  1. VIMPAT [Concomitant]
     Active Substance: LACOSAMIDE
     Dosage: STRENGTH: 150, DAILY DOSE: 2T
  2. LANTUS SOLOSTAR [Suspect]
     Active Substance: INSULIN GLARGINE
     Indication: TYPE 2 DIABETES MELLITUS
     Dosage: DOSE:22 UNIT(S)
     Route: 051
     Dates: start: 2016
  3. METFORMIN [Concomitant]
     Active Substance: METFORMIN HYDROCHLORIDE
     Dosage: STRENGTH: 500 MG, DAILY DOSE: 2T
  4. REPAGLINIDE. [Concomitant]
     Active Substance: REPAGLINIDE
     Dosage: STRENGTH: 1 MG, DAILY DOSE: 3T
  5. REPAGLINIDE. [Concomitant]
     Active Substance: REPAGLINIDE
     Dosage: STRENGTH: 2 MG, DAILY DOSE: 3T
  6. SOLOSTAR [Concomitant]
     Active Substance: DEVICE
     Indication: TYPE 2 DIABETES MELLITUS
     Dates: start: 2016

REACTIONS (3)
  - Food allergy [Recovered/Resolved]
  - Visual impairment [Unknown]
  - Rash [Recovered/Resolved]

NARRATIVE: CASE EVENT DATE: 2016
